FAERS Safety Report 15879826 (Version 1)
Quarter: 2019Q1

REPORT INFORMATION
  Report Type: Report from Study
  Country: CA (occurrence: CA)
  Receive Date: 20190128
  Receipt Date: 20190128
  Transmission Date: 20190417
  Serious: Yes (Other)
  Sender: FDA-Public Use
  Company Number: CA-ROCHE-2250598

PATIENT

DRUGS (3)
  1. TAK-659 [Suspect]
     Active Substance: MIVAVOTINIB CITRATE
     Indication: COMPOSITE LYMPHOMA
     Dosage: STARTING DOSE
     Route: 048
  2. BENDAMUSTINE [Suspect]
     Active Substance: BENDAMUSTINE
     Indication: COMPOSITE LYMPHOMA
     Dosage: ON DAY 1 AND DAY 2.
     Route: 042
  3. RITUXIMAB. [Suspect]
     Active Substance: RITUXIMAB
     Indication: COMPOSITE LYMPHOMA
     Dosage: DAY 1 OF A 21-DAY CYCLE.
     Route: 042

REACTIONS (3)
  - Hypophosphataemia [Unknown]
  - Febrile neutropenia [Unknown]
  - Anaemia [Unknown]
